FAERS Safety Report 5713841-5 (Version None)
Quarter: 2008Q2

REPORT INFORMATION
  Report Type: 
  Country: None (occurrence: None)
  Receive Date: 20080421
  Receipt Date: 20080411
  Transmission Date: 20081010
  Serious: Yes (Other)
  Sender: FDA-Public Use
  Company Number: 2008AP000868

PATIENT
  Age: 64 Year
  Sex: Male

DRUGS (6)
  1. ALLOPURINOL [Suspect]
     Indication: GOUT
     Dosage: 300 MG;QD;PO
     Route: 048
  2. DILTIAZEM [Concomitant]
  3. DIGOXIN [Concomitant]
  4. BISOPROLOL (BISOPROLOL) [Concomitant]
  5. TELMISARTAN (TELMISARTAN) [Concomitant]
  6. HYDROCHLOROTHIAZIDE [Concomitant]

REACTIONS (6)
  - CHEILITIS [None]
  - ORAL MUCOSAL ERUPTION [None]
  - RASH PAPULOSQUAMOUS [None]
  - SCAB [None]
  - SKIN FISSURES [None]
  - STEVENS-JOHNSON SYNDROME [None]
